FAERS Safety Report 16404078 (Version 1)
Quarter: 2019Q2

REPORT INFORMATION
  Report Type: Spontaneous
  Country: US (occurrence: US)
  Receive Date: 20190607
  Receipt Date: 20190607
  Transmission Date: 20190711
  Serious: Yes (Other)
  Sender: FDA-Public Use
  Company Number: US-SUNOVION-2019SUN002354

PATIENT
  Age: 63 Year
  Sex: Male
  Weight: 50.7 kg

DRUGS (3)
  1. LONHALA MAGNAIR [Suspect]
     Active Substance: GLYCOPYRROLATE
     Indication: CHRONIC OBSTRUCTIVE PULMONARY DISEASE
     Dosage: 25?G/ 1 ML BID
     Route: 055
     Dates: start: 20190501, end: 20190501
  2. ADVAIR HFA [Concomitant]
     Active Substance: FLUTICASONE PROPIONATE\SALMETEROL XINAFOATE
     Dosage: UNK
  3. OXYGEN. [Concomitant]
     Active Substance: OXYGEN
     Dosage: 3 LITERS

REACTIONS (7)
  - Myocardial infarction [Unknown]
  - Dysstasia [Unknown]
  - Arthralgia [Unknown]
  - Dizziness [Unknown]
  - Myalgia [Unknown]
  - Feeding disorder [Unknown]
  - Asthenia [Unknown]

NARRATIVE: CASE EVENT DATE: 20190501
